FAERS Safety Report 5775396-9 (Version None)
Quarter: 2008Q2

REPORT INFORMATION
  Report Type: 
  Country: None (occurrence: None)
  Receive Date: 20080617
  Receipt Date: 20080606
  Transmission Date: 20081010
  Serious: Yes (Hospitalization, Other)
  Sender: FDA-Public Use
  Company Number: DK-BAXTER-2008BH003586

PATIENT
  Age: 8 Month
  Sex: Female
  Weight: 9 kg

DRUGS (1)
  1. GAMMAGARD LIQUID [Suspect]
     Indication: LYMPHOHISTIOCYTOSIS
     Route: 042
     Dates: start: 20080411, end: 20080411

REACTIONS (1)
  - ANAPHYLACTIC SHOCK [None]
